FAERS Safety Report 15661134 (Version 1)
Quarter: 2018Q4

REPORT INFORMATION
  Report Type: Spontaneous
  Country: US (occurrence: US)
  Receive Date: 20181116
  Receipt Date: 20181116
  Transmission Date: 20190205
  Serious: No
  Sender: FDA-Public Use
  Company Number: None

PATIENT
  Age: 72 Year
  Sex: Female
  Weight: 58.97 kg

DRUGS (8)
  1. PANTOPRAZOLE 40MG [Concomitant]
     Active Substance: PANTOPRAZOLE SODIUM
  2. HYOSCYAMINE 0.125 [Concomitant]
  3. LOSARTAN HCTZ 12.5 MG [Concomitant]
  4. TYLENOL [Concomitant]
     Active Substance: ACETAMINOPHEN
  5. LEVAQUIN [Suspect]
     Active Substance: LEVOFLOXACIN
     Indication: DIVERTICULITIS
     Dosage: ?          QUANTITY:1;OTHER ROUTE:MOUTH + INJECTION?
     Route: 048
     Dates: start: 20180930, end: 20181103
  6. FAMOTIDINE 40MG [Concomitant]
     Active Substance: FAMOTIDINE
  7. OMERAZOLE 40 MG [Concomitant]
  8. DICYCLOMINE 10 MG [Concomitant]

REACTIONS (3)
  - Arthralgia [None]
  - Pain in extremity [None]
  - Drug hypersensitivity [None]

NARRATIVE: CASE EVENT DATE: 20180930
